FAERS Safety Report 9885098 (Version 2)
Quarter: 2014Q1

REPORT INFORMATION
  Report Type: Spontaneous
  Country: ZA (occurrence: ZA)
  Receive Date: 20140210
  Receipt Date: 20140210
  Transmission Date: 20141002
  Serious: Yes (Life-Threatening, Other)
  Sender: FDA-Public Use
  Company Number: ZA-PFIZER INC-2014008190

PATIENT
  Age: 2 Year
  Sex: Male

DRUGS (1)
  1. ATROPINE SULFATE/DIPHENOXYLATE HYDROCHLORIDE [Suspect]
     Dosage: 10 TABLETS, UNK

REACTIONS (5)
  - Accidental exposure to product [Unknown]
  - Toxicity to various agents [Unknown]
  - Depressed level of consciousness [Recovered/Resolved]
  - Respiratory depression [Not Recovered/Not Resolved]
  - Hypertonia [Unknown]
